FAERS Safety Report 21205016 (Version 1)
Quarter: 2022Q3

REPORT INFORMATION
  Report Type: Other
  Country: CA (occurrence: None)
  Receive Date: 20220812
  Receipt Date: 20220812
  Transmission Date: 20221026
  Serious: Yes (Other)
  Sender: FDA-Public Use
  Company Number: CA-ROCHE-3156618

PATIENT
  Age: 41 Year
  Sex: Male

DRUGS (6)
  1. RITUXIMAB [Suspect]
     Active Substance: RITUXIMAB
     Indication: Haematoma
     Dosage: 4 X 375 MG/M2
     Route: 041
  2. EMICIZUMAB [Suspect]
     Active Substance: EMICIZUMAB
     Indication: Acquired haemophilia
     Route: 058
  3. EMICIZUMAB [Suspect]
     Active Substance: EMICIZUMAB
     Route: 058
  4. CYCLOPHOSPHAMIDE [Suspect]
     Active Substance: CYCLOPHOSPHAMIDE
     Indication: Haematoma
     Route: 065
  5. PREDNISONE [Concomitant]
     Active Substance: PREDNISONE
     Indication: Haematoma
     Route: 065
  6. FILGRASTIM [Concomitant]
     Active Substance: FILGRASTIM
     Indication: Neutropenia

REACTIONS (4)
  - Respiratory syncytial virus infection [Unknown]
  - Coronavirus infection [Unknown]
  - Scrotal cellulitis [Unknown]
  - Off label use [Unknown]
